FAERS Safety Report 9657012 (Version 2)
Quarter: 2013Q4

REPORT INFORMATION
  Report Type: Spontaneous
  Country: US (occurrence: US)
  Receive Date: 20131030
  Receipt Date: 20131217
  Transmission Date: 20140711
  Serious: Yes (Disabling, Other)
  Sender: FDA-Public Use
  Company Number: US-009507513-1310USA012458

PATIENT
  Age: 40 Year
  Sex: Female
  Weight: 61.22 kg

DRUGS (1)
  1. SAPHRIS [Suspect]
     Indication: PSYCHOTIC DISORDER
     Dosage: 10 MG, TWICE A DAY
     Route: 060
     Dates: start: 201101, end: 20131114

REACTIONS (2)
  - Acute psychosis [Not Recovered/Not Resolved]
  - Therapeutic response decreased [Not Recovered/Not Resolved]
